FAERS Safety Report 10610989 (Version 2)
Quarter: 2014Q4

REPORT INFORMATION
  Report Type: Spontaneous
  Country: US (occurrence: US)
  Receive Date: 20141126
  Receipt Date: 20141223
  Transmission Date: 20150529
  Serious: Yes (Other)
  Sender: FDA-Public Use
  Company Number: US-BAYER-2014-174205

PATIENT
  Age: 19 Year
  Sex: Female

DRUGS (2)
  1. MIRENA [Suspect]
     Active Substance: LEVONORGESTREL
     Indication: CONTRACEPTION
     Dosage: 20 MCG/24HR, CONT
     Route: 015
     Dates: start: 20141107
  2. ALBUTEROL. [Concomitant]
     Active Substance: ALBUTEROL

REACTIONS (4)
  - Post procedural haemorrhage [None]
  - Procedural pain [None]
  - Vaginal haemorrhage [Not Recovered/Not Resolved]
  - Vaginal odour [None]

NARRATIVE: CASE EVENT DATE: 2014
